FAERS Safety Report 10561878 (Version 2)
Quarter: 2014Q4

REPORT INFORMATION
  Report Type: Report from Study
  Country: US (occurrence: US)
  Receive Date: 20141104
  Receipt Date: 20141104
  Transmission Date: 20150529
  Serious: Yes (Other)
  Sender: FDA-Public Use
  Company Number: US-ROCHE-1346815

PATIENT
  Sex: Female

DRUGS (34)
  1. AVASTIN [Suspect]
     Active Substance: BEVACIZUMAB
     Dosage: BOTH EYES
     Route: 065
     Dates: start: 20131108
  2. KLONOPIN [Suspect]
     Active Substance: CLONAZEPAM
     Indication: PRODUCT USED FOR UNKNOWN INDICATION
     Route: 065
  3. METHOTREXATE [Concomitant]
     Active Substance: METHOTREXATE
     Dosage: 5 TABS WEEKLY
     Route: 065
  4. NEURONTIN (UNITED STATES) [Concomitant]
     Route: 065
  5. WELLBUTRIN XL [Concomitant]
     Active Substance: BUPROPION HYDROCHLORIDE
     Route: 065
  6. ZOLOFT [Concomitant]
     Active Substance: SERTRALINE HYDROCHLORIDE
     Route: 065
  7. LUCENTIS [Suspect]
     Active Substance: RANIBIZUMAB
     Dosage: IN RIGHT AND LEFT EYE
     Route: 065
     Dates: start: 20140512
  8. LUCENTIS [Suspect]
     Active Substance: RANIBIZUMAB
     Dosage: IN RIGHT AND LEFT EYE
     Route: 065
     Dates: start: 20140616
  9. LEVOTHROID [Concomitant]
     Active Substance: LEVOTHYROXINE SODIUM
     Route: 065
  10. ROCALTROL [Concomitant]
     Active Substance: CALCITRIOL
     Dosage: ONE TABLET TWICE DAILY
     Route: 065
  11. LUCENTIS [Suspect]
     Active Substance: RANIBIZUMAB
     Indication: MACULAR OEDEMA
     Dosage: IN LEFT EYE.
     Route: 065
     Dates: start: 20140303
  12. LUCENTIS [Suspect]
     Active Substance: RANIBIZUMAB
     Dosage: IN RIGHT AND LEFT EYE
     Route: 065
     Dates: start: 20140714
  13. TYLENOL [Concomitant]
     Active Substance: ACETAMINOPHEN
     Dosage: 2 TABS IN THE MORNING AND 2 TABS IN THE EVENING
     Route: 065
  14. BENADRYL [Concomitant]
     Active Substance: DIPHENHYDRAMINE HYDROCHLORIDE
  15. MELATONIN [Concomitant]
     Active Substance: MELATONIN
     Dosage: AT BEDTIME
     Route: 065
  16. LUCENTIS [Suspect]
     Active Substance: RANIBIZUMAB
     Dosage: IN RIGHT AND LEFT EYE.
     Route: 065
     Dates: start: 20140407
  17. TRIAMCINOLONE ACETONIDE. [Concomitant]
     Active Substance: TRIAMCINOLONE ACETONIDE
     Dosage: IN RIGHT EYE
     Route: 050
     Dates: start: 20140303
  18. AVASTIN [Suspect]
     Active Substance: BEVACIZUMAB
     Dosage: BOTH EYES
     Route: 065
     Dates: start: 20140106
  19. LUCENTIS [Suspect]
     Active Substance: RANIBIZUMAB
     Dosage: IN RIGHT AND LEFT EYE
     Route: 065
     Dates: start: 20140813
  20. CALCIUM CARBONATE. [Concomitant]
     Active Substance: CALCIUM CARBONATE
     Dosage: 1 TABS TWICE DAILY
     Route: 065
  21. DORZOLAMIDE [Concomitant]
     Active Substance: DORZOLAMIDE
     Dosage: ONE DROP TWICE DAILY IN RIGHT EYE
     Route: 061
  22. TRIAMCINOLONE ACETONIDE. [Concomitant]
     Active Substance: TRIAMCINOLONE ACETONIDE
     Dosage: IN BOTH EYES
     Route: 050
     Dates: start: 20130329
  23. AVASTIN [Suspect]
     Active Substance: BEVACIZUMAB
     Dosage: BOTH EYES
     Route: 065
     Dates: start: 20131202
  24. AVASTIN [Suspect]
     Active Substance: BEVACIZUMAB
     Dosage: RIGHT EYE
     Route: 065
     Dates: start: 20131018
  25. MECLIZINE HCL [Concomitant]
     Active Substance: MECLIZINE HYDROCHLORIDE
     Route: 065
  26. FENOFIBRATE MICRO [Concomitant]
     Active Substance: FENOFIBRATE
     Route: 065
  27. AVASTIN [Suspect]
     Active Substance: BEVACIZUMAB
     Indication: DIABETIC RETINAL OEDEMA
     Dosage: BOTH EYES
     Route: 065
     Dates: start: 20140203
  28. ASPIRIN. [Concomitant]
     Active Substance: ASPIRIN
     Route: 065
  29. SYSTANE (HYPROMELLOSE 2910 (4000 MPA.S)) [Concomitant]
     Active Substance: HYPROMELLOSE 2910 (4000 MPA.S)
     Dosage: 1 DROP TWICE AT NIGHT
     Route: 065
  30. SYSTANE ULTRA [Concomitant]
     Active Substance: POLYETHYLENE GLYCOL 400\PROPYLENE GLYCOL
     Indication: DRY EYE
     Dosage: 0.4/0.3% SOLUTION AS NEEDED
     Route: 065
  31. TRIAMCINOLONE ACETONIDE. [Concomitant]
     Active Substance: TRIAMCINOLONE ACETONIDE
     Dosage: IN RIGHT EYE
     Route: 050
     Dates: start: 20130621
  32. PILOCARPINE HCL [Concomitant]
     Active Substance: PILOCARPINE HYDROCHLORIDE
     Route: 065
  33. PRILOSEC [Concomitant]
     Active Substance: OMEPRAZOLE MAGNESIUM
     Route: 065
  34. DEXAMETHASONE. [Concomitant]
     Active Substance: DEXAMETHASONE
     Dosage: RIGHT EYE
     Route: 065
     Dates: start: 20130920

REACTIONS (14)
  - Eye irritation [Unknown]
  - Cutis laxa [Unknown]
  - Retinal haemorrhage [Unknown]
  - Eye pruritus [Unknown]
  - Metamorphopsia [Unknown]
  - Photophobia [Unknown]
  - Vision blurred [Unknown]
  - Fatigue [Unknown]
  - Dry eye [Unknown]
  - Macular pigmentation [Unknown]
  - Photopsia [Unknown]
  - Vitreous floaters [Unknown]
  - Retinal disorder [Unknown]
  - Product use issue [Unknown]
